FAERS Safety Report 10152532 (Version 3)
Quarter: 2014Q2

REPORT INFORMATION
  Report Type: Report from Study
  Country: JP (occurrence: JP)
  Receive Date: 20140505
  Receipt Date: 20140530
  Transmission Date: 20141212
  Serious: Yes (Other)
  Sender: FDA-Public Use
  Company Number: JP-ALEXION PHARMACEUTICALS INC.-A201401646

PATIENT
  Sex: 0

DRUGS (2)
  1. SOLIRIS [Suspect]
     Indication: PAROXYSMAL NOCTURNAL HAEMOGLOBINURIA
     Dosage: 600 MG, UNK
     Route: 042
     Dates: start: 20130110
  2. SOLIRIS [Suspect]
     Dosage: 900 MG, UNK
     Route: 042

REACTIONS (4)
  - Myelodysplastic syndrome [Unknown]
  - Cardiac failure [Recovered/Resolved]
  - Pneumonia [Recovered/Resolved]
  - Anaemia [Unknown]
